FAERS Safety Report 7384442-0 (Version None)
Quarter: 2011Q1

REPORT INFORMATION
  Report Type: 
  Country: None (occurrence: None)
  Receive Date: 20110330
  Receipt Date: 20110323
  Transmission Date: 20110831
  Serious: Yes (Hospitalization)
  Sender: FDA-Public Use
  Company Number: ES-BRISTOL-MYERS SQUIBB COMPANY-15631732

PATIENT
  Age: 8 Decade
  Sex: Male

DRUGS (1)
  1. MYCOSTATIN [Suspect]
     Indication: FUNGAL INFECTION
     Dosage: FOR 5 DAYS

REACTIONS (4)
  - ORAL PAIN [None]
  - OESOPHAGITIS [None]
  - HYPERPARATHYROIDISM [None]
  - GASTRIC ULCER [None]
